FAERS Safety Report 4461243-4 (Version None)
Quarter: 2004Q3

REPORT INFORMATION
  Report Type: 
  Country: None (occurrence: None)
  Receive Date: 20040928
  Receipt Date: 20040531
  Transmission Date: 20050211
  Serious: Yes (Death)
  Sender: FDA-Public Use
  Company Number: JP-ROCHE-369552

PATIENT
  Age: 67 Year
  Sex: Male

DRUGS (1)
  1. ROCEPHIN [Suspect]
     Indication: PNEUMONIA
     Route: 042
     Dates: start: 20040529, end: 20040529

REACTIONS (6)
  - ANAPHYLACTIC REACTION [None]
  - CARDIO-RESPIRATORY ARREST [None]
  - GENERALISED ERYTHEMA [None]
  - PRODUCTIVE COUGH [None]
  - PYREXIA [None]
  - SHOCK [None]
